FAERS Safety Report 5076185-3 (Version None)
Quarter: 2006Q3

REPORT INFORMATION
  Report Type: 
  Country: None (occurrence: None)
  Receive Date: 20060725
  Receipt Date: 20060310
  Transmission Date: 20061208
  Serious: No
  Sender: FDA-Public Use
  Company Number: 200611535BWH

PATIENT
  Age: 64 Year
  Sex: Male
  Weight: 88.4514 kg

DRUGS (3)
  1. NEXAVAR [Suspect]
     Indication: RENAL CELL CARCINOMA STAGE UNSPECIFIED
     Dosage: 400 MG, BID, ORAL
     Route: 048
     Dates: start: 20060301
  2. BISOPROLOL FUMARATE [Concomitant]
  3. PAXIL [Concomitant]

REACTIONS (13)
  - ALOPECIA [None]
  - BLOOD PRESSURE INCREASED [None]
  - DIARRHOEA [None]
  - ERYTHEMA [None]
  - HYPOTRICHOSIS [None]
  - MUSCULAR WEAKNESS [None]
  - PAIN IN EXTREMITY [None]
  - PHARYNGOLARYNGEAL PAIN [None]
  - RASH [None]
  - RASH GENERALISED [None]
  - SKIN IRRITATION [None]
  - SWELLING FACE [None]
  - URTICARIA [None]
